FAERS Safety Report 8214038-X (Version None)
Quarter: 2012Q1

REPORT INFORMATION
  Report Type: 
  Country: None (occurrence: None)
  Receive Date: 20120314
  Receipt Date: 20120314
  Transmission Date: 20120608
  Serious: Yes (Other)
  Sender: FDA-Public Use
  Company Number: None

PATIENT
  Age: 68 Year
  Sex: Male

DRUGS (7)
  1. REVLIMID [Suspect]
     Indication: MULTIPLE MYELOMA
     Dosage: 10MG QD21D/28D ORALLY
     Route: 048
  2. CYANOCOBALAMIN [Concomitant]
  3. VICODIN [Concomitant]
  4. DECADRON [Concomitant]
  5. ASPIRIN [Concomitant]
  6. AMBIEN [Concomitant]
  7. MARIONOL [Concomitant]

REACTIONS (2)
  - PNEUMONIA [None]
  - FATIGUE [None]
